FAERS Safety Report 15500515 (Version 1)
Quarter: 2018Q4

REPORT INFORMATION
  Report Type: Spontaneous
  Country: US (occurrence: US)
  Receive Date: 20181015
  Receipt Date: 20181015
  Transmission Date: 20190205
  Serious: Yes (Other)
  Sender: FDA-Public Use
  Company Number: None

PATIENT
  Age: 56 Year
  Sex: Female
  Weight: 63.9 kg

DRUGS (16)
  1. RANITIDINE. [Concomitant]
     Active Substance: RANITIDINE
  2. IRON SUPPLEMENT [Concomitant]
     Active Substance: IRON
  3. PROLIA [Concomitant]
     Active Substance: DENOSUMAB
  4. GLUCOSAMINE/CHONDROITIN/MSM [Concomitant]
  5. ASPIRIN. [Concomitant]
     Active Substance: ASPIRIN
  6. CALCIUM/MAGNESIUM [Concomitant]
     Active Substance: CALCIUM\MAGNESIUM
  7. VITAMIN D [Concomitant]
     Active Substance: CHOLECALCIFEROL
  8. LORATADINE. [Concomitant]
     Active Substance: LORATADINE
  9. LAMOTRIGINE. [Suspect]
     Active Substance: LAMOTRIGINE
     Indication: BIPOLAR DISORDER
     Dosage: ?          QUANTITY:90 TABLET(S);?
     Route: 048
     Dates: start: 20181013, end: 20181014
  10. ALPRAZOLAM. [Concomitant]
     Active Substance: ALPRAZOLAM
  11. QUETIAPINE. [Concomitant]
     Active Substance: QUETIAPINE
  12. FISH OIL [Concomitant]
     Active Substance: FISH OIL
  13. LAMOTRIGINE. [Concomitant]
     Active Substance: LAMOTRIGINE
  14. VITAMIN B COMPLEX [Concomitant]
     Active Substance: CYANOCOBALAMIN\DEXPANTHENOL\NIACINAMIDE\PYRIDOXINE HYDROCHLORIDE\RIBOFLAVIN 5^-PHOSPHATE SODIUM\THIAMINE HYDROCHLORIDE\VITAMIN B COMPLEX
  15. FLUOXETINE [Concomitant]
     Active Substance: FLUOXETINE HYDROCHLORIDE
  16. SIMVASTATIN. [Concomitant]
     Active Substance: SIMVASTATIN

REACTIONS (5)
  - Emotional distress [None]
  - Product quality issue [None]
  - Suicidal ideation [None]
  - Homicidal ideation [None]
  - Product substitution issue [None]

NARRATIVE: CASE EVENT DATE: 20181015
